FAERS Safety Report 11124952 (Version 1)
Quarter: 2015Q2

REPORT INFORMATION
  Report Type: Spontaneous
  Country: IT (occurrence: IT)
  Receive Date: 20150520
  Receipt Date: 20150520
  Transmission Date: 20150821
  Serious: Yes (Other)
  Sender: FDA-Public Use
  Company Number: IT-ACTAVIS-2015-09870

PATIENT
  Age: 58 Year
  Sex: Male
  Weight: 71 kg

DRUGS (1)
  1. DOCETAXEL (UNKNOWN) [Suspect]
     Active Substance: DOCETAXEL
     Indication: BRONCHIOLOALVEOLAR CARCINOMA
     Dosage: 100 MG, CYCLICAL
     Route: 042
     Dates: start: 20150109, end: 20150429

REACTIONS (5)
  - Neutropenia [Recovering/Resolving]
  - Paraesthesia [Recovering/Resolving]
  - Pyrexia [Recovering/Resolving]
  - Musculoskeletal pain [Recovering/Resolving]
  - Gravitational oedema [Not Recovered/Not Resolved]

NARRATIVE: CASE EVENT DATE: 20150120
